FAERS Safety Report 6187850-9 (Version None)
Quarter: 2009Q2

REPORT INFORMATION
  Report Type: 
  Country: None (occurrence: None)
  Receive Date: 20090513
  Receipt Date: 20090505
  Transmission Date: 20091009
  Serious: Yes (Hospitalization)
  Sender: FDA-Public Use
  Company Number: US-BAYER-200911404BCC

PATIENT
  Age: 76 Year
  Sex: Male
  Weight: 95 kg

DRUGS (1)
  1. ALEVE [Suspect]
     Indication: NASAL CONGESTION
     Dosage: 3 ALEVES MULTIPLE TIMES/DAY (ABOUT EVERY 2 HOURS AND SOME TIMES EVEN MORE FREQUENTLY)
     Route: 048

REACTIONS (1)
  - HAEMORRHAGE [None]
